FAERS Safety Report 6749287-0 (Version None)
Quarter: 2010Q2

REPORT INFORMATION
  Report Type: 
  Country: None (occurrence: None)
  Receive Date: 20100601
  Receipt Date: 20100520
  Transmission Date: 20101027
  Serious: Yes (Other)
  Sender: FDA-Public Use
  Company Number: PHHY2010US27939

PATIENT
  Sex: Male

DRUGS (4)
  1. AFINITOR [Suspect]
     Indication: CARCINOID TUMOUR
     Dosage: 10 MG, DAILY
     Route: 048
     Dates: start: 20100416, end: 20100503
  2. LOPRESSOR [Concomitant]
  3. LYRICA [Concomitant]
  4. LUNESTA [Concomitant]

REACTIONS (5)
  - EXPIRED DRUG ADMINISTERED [None]
  - GAIT DISTURBANCE [None]
  - MUSCLE SPASMS [None]
  - MYALGIA [None]
  - PAIN [None]
